FAERS Safety Report 14855569 (Version 1)
Quarter: 2018Q2

REPORT INFORMATION
  Report Type: Spontaneous
  Country: US (occurrence: US)
  Receive Date: 20180507
  Receipt Date: 20180507
  Transmission Date: 20180711
  Serious: No
  Sender: FDA-Public Use
  Company Number: US-ROCHE-1987868

PATIENT
  Sex: Male

DRUGS (2)
  1. ESBRIET [Suspect]
     Active Substance: PIRFENIDONE
     Indication: PRODUCT USED FOR UNKNOWN INDICATION
     Dosage: 3 CAPSULES THRICE A DAY
     Route: 065
     Dates: start: 201705
  2. ESBRIET [Suspect]
     Active Substance: PIRFENIDONE
     Dosage: 1 CAPSULE THRICE A DAY
     Route: 065
     Dates: end: 20170828

REACTIONS (5)
  - Abnormal loss of weight [Unknown]
  - Nausea [Unknown]
  - Dyspepsia [Unknown]
  - Fatigue [Unknown]
  - Decreased appetite [Unknown]
